FAERS Safety Report 10431636 (Version 1)
Quarter: 2014Q3

REPORT INFORMATION
  Report Type: Spontaneous
  Country: US (occurrence: US)
  Receive Date: 20140904
  Receipt Date: 20140904
  Transmission Date: 20150326
  Serious: Yes (Other)
  Sender: FDA-Public Use
  Company Number: US-GILEAD-2014-0114066

PATIENT
  Age: 54 Year
  Sex: Female

DRUGS (5)
  1. DALIRESP [Concomitant]
     Active Substance: ROFLUMILAST
  2. LASIX [Concomitant]
     Active Substance: FUROSEMIDE
  3. LORATADINE. [Concomitant]
     Active Substance: LORATADINE
  4. LETAIRIS [Suspect]
     Active Substance: AMBRISENTAN
     Indication: PULMONARY HYPERTENSION
     Dosage: 10 MG, QD
     Route: 065
     Dates: start: 20140429
  5. SILDENAFIL [Concomitant]
     Active Substance: SILDENAFIL

REACTIONS (7)
  - Gait disturbance [Not Recovered/Not Resolved]
  - Mass [Unknown]
  - Migraine [Not Recovered/Not Resolved]
  - Dizziness [Unknown]
  - Dyspnoea [Unknown]
  - Nausea [Unknown]
  - Condition aggravated [Unknown]

NARRATIVE: CASE EVENT DATE: 201404
